FAERS Safety Report 11455367 (Version 3)
Quarter: 2015Q4

REPORT INFORMATION
  Report Type: Spontaneous
  Country: JP (occurrence: JP)
  Receive Date: 20150903
  Receipt Date: 20151028
  Transmission Date: 20160304
  Serious: Yes (Other)
  Sender: FDA-Public Use
  Company Number: JP-BAYER-2015-406391

PATIENT
  Sex: Female

DRUGS (1)
  1. MAGNEVIST [Suspect]
     Active Substance: GADOPENTETATE DIMEGLUMINE
     Dosage: UNK

REACTIONS (3)
  - Arterial injury [Recovering/Resolving]
  - Wound haemorrhage [Recovering/Resolving]
  - Syringe issue [None]

NARRATIVE: CASE EVENT DATE: 20150822
